FAERS Safety Report 24787313 (Version 1)
Quarter: 2024Q4

REPORT INFORMATION
  Report Type: Other
  Country: PT (occurrence: PT)
  Receive Date: 20241230
  Receipt Date: 20241230
  Transmission Date: 20250115
  Serious: Yes (Hospitalization)
  Sender: ANI
  Company Number: PT-ANIPHARMA-015231

PATIENT
  Age: 55 Year
  Sex: Female

DRUGS (5)
  1. IBUPROFEN [Suspect]
     Active Substance: IBUPROFEN
     Indication: Pyrexia
  2. ACETAMINOPHEN [Concomitant]
     Active Substance: ACETAMINOPHEN
     Indication: Pyrexia
  3. AMOXICILLIN\CLAVULANIC ACID [Concomitant]
     Active Substance: AMOXICILLIN\CLAVULANIC ACID
     Indication: Pyrexia
  4. ACETAMINOPHEN [Concomitant]
     Active Substance: ACETAMINOPHEN
     Indication: Odynophagia
  5. IBUPROFEN [Suspect]
     Active Substance: IBUPROFEN
     Indication: Odynophagia

REACTIONS (2)
  - Intentional product misuse [Unknown]
  - Drug ineffective [Unknown]
